FAERS Safety Report 8924516 (Version 1)
Quarter: 2012Q4

REPORT INFORMATION
  Report Type: Report from Study
  Country: JP (occurrence: JP)
  Receive Date: 20121126
  Receipt Date: 20121126
  Transmission Date: 20130627
  Serious: No
  Sender: FDA-Public Use
  Company Number: JP-VERTEX PHARMACEUTICAL INC.-AE-2012-007248

PATIENT
  Age: 71 Year
  Sex: Female

DRUGS (12)
  1. VX-950 (TELAPREVIR) [Suspect]
     Indication: HEPATITIS C
     Dosage: 1500 mg, UNK
     Route: 048
     Dates: start: 20120207, end: 20120430
  2. RIBAVIRIN [Suspect]
     Indication: HEPATITIS C
     Route: 048
     Dates: start: 20120207, end: 20120227
  3. RIBAVIRIN [Suspect]
     Dosage: 800 mg, UNK
     Route: 048
     Dates: start: 20120207, end: 20120213
  4. RIBAVIRIN [Suspect]
     Dosage: 600 mg, UNK
     Route: 048
     Dates: start: 20120214, end: 20120227
  5. RIBAVIRIN [Suspect]
     Dosage: 400 mg, UNK
     Route: 048
     Dates: start: 20120228, end: 20120528
  6. RIBAVIRIN [Suspect]
     Dosage: 200 mg, UNK
     Route: 048
     Dates: start: 20120529, end: 20120728
  7. PEGINTRON [Concomitant]
     Dosage: 1.5 ?g/kg, UNK
     Route: 051
     Dates: start: 20120207, end: 20120717
  8. LORFENAMIN [Concomitant]
     Route: 048
     Dates: start: 20120207
  9. REBAMIPIDE [Concomitant]
     Route: 048
     Dates: start: 20120207
  10. LIDOMEX [Concomitant]
     Dosage: UNK
     Dates: start: 20120213, end: 20120226
  11. KINDAVATE [Concomitant]
     Dosage: UNK
     Dates: start: 20120213, end: 20120226
  12. PREDONINE                          /00016201/ [Concomitant]
     Dosage: UNK
     Dates: start: 20120213, end: 20120226

REACTIONS (1)
  - Malaise [Recovered/Resolved]
